FAERS Safety Report 26074666 (Version 1)
Quarter: 2025Q4

REPORT INFORMATION
  Report Type: Spontaneous
  Country: EU (occurrence: EU)
  Receive Date: 20251121
  Receipt Date: 20251121
  Transmission Date: 20260117
  Serious: Yes (Hospitalization, Other)
  Sender: MYLAN
  Company Number: EU-MYLANLABS-2025M1098978

PATIENT
  Age: 26 Year
  Sex: Male
  Weight: 84.5 kg

DRUGS (4)
  1. CLOZAPINE [Suspect]
     Active Substance: CLOZAPINE
     Indication: Product used for unknown indication
     Dosage: UNK, TID (1+1+2.5)
  2. AMISULPRIDE [Suspect]
     Active Substance: AMISULPRIDE
     Indication: Product used for unknown indication
     Dosage: UNK
  3. FLUVOXAMINE [Concomitant]
     Active Substance: FLUVOXAMINE
     Dosage: 3 DOSAGE FORM, QD (1+0+2)
  4. TOPIRAMATE [Concomitant]
     Active Substance: TOPIRAMATE
     Dosage: 1 DOSAGE FORM, BID (1+0+1)

REACTIONS (3)
  - Psychiatric decompensation [Unknown]
  - Suicidal ideation [Unknown]
  - Schizophrenia [Unknown]

NARRATIVE: CASE EVENT DATE: 20210101
